FAERS Safety Report 23228028 (Version 1)
Quarter: 2023Q4

REPORT INFORMATION
  Report Type: Spontaneous
  Country: GB (occurrence: GB)
  Receive Date: 20231125
  Receipt Date: 20231125
  Transmission Date: 20240110
  Serious: Yes (Other)
  Sender: FDA-Public Use
  Company Number: GB-TEVA-2023-GB-2949452

PATIENT
  Age: 69 Year
  Sex: Female
  Weight: 120 kg

DRUGS (1)
  1. HYDROCORTISONE [Suspect]
     Active Substance: HYDROCORTISONE
     Indication: Joint injection
     Dosage: DURATION : 1 DAY
     Route: 014
     Dates: start: 20231120, end: 20231120

REACTIONS (5)
  - Urticaria [Recovering/Resolving]
  - Lethargy [Recovering/Resolving]
  - Tachycardia [Recovered/Resolved]
  - Headache [Recovered/Resolved]
  - Eye swelling [Recovered/Resolved]

NARRATIVE: CASE EVENT DATE: 20231120
